FAERS Safety Report 7384430-4 (Version None)
Quarter: 2011Q1

REPORT INFORMATION
  Report Type: 
  Country: None (occurrence: None)
  Receive Date: 20110330
  Receipt Date: 20110328
  Transmission Date: 20110831
  Serious: Yes (Hospitalization)
  Sender: FDA-Public Use
  Company Number: US-BRISTOL-MYERS SQUIBB COMPANY-15583271

PATIENT
  Age: 51 Year
  Sex: Male
  Weight: 96 kg

DRUGS (34)
  1. LYRICA [Concomitant]
  2. XALATAN [Concomitant]
  3. ALPRAZOLAM [Concomitant]
  4. SERTRALINE HYDROCHLORIDE [Concomitant]
  5. OXYGEN [Concomitant]
  6. LORATADINE [Concomitant]
  7. FORMOTEROL FUMARATE [Concomitant]
  8. POTASSIUM CHLORIDE [Concomitant]
  9. GLIPIZIDE [Concomitant]
  10. INDERAL [Concomitant]
     Dates: end: 20110215
  11. OXYCODONE [Concomitant]
  12. ZOCOR [Concomitant]
  13. PACLITAXEL [Suspect]
  14. CARBOPLATIN [Suspect]
  15. FUROSEMIDE [Concomitant]
  16. MILK OF MAGNESIA TAB [Concomitant]
  17. NORTRIPTYLINE [Concomitant]
  18. NICOTINE [Concomitant]
  19. CISPLATIN [Suspect]
     Indication: NON-SMALL CELL LUNG CANCER
     Dosage: DAY 1, 8.DISCONTINUED ON 08FEB11
     Route: 042
     Dates: start: 20110124, end: 20110131
  20. METAXALONE [Concomitant]
  21. NITROSTAT [Concomitant]
  22. PROCHLORPERAZINE MALEATE [Concomitant]
  23. PROTONIX [Concomitant]
  24. DEXAMETHASONE [Concomitant]
     Dates: start: 20110124
  25. METFORMIN [Concomitant]
  26. OXYCONTIN [Concomitant]
  27. SEROQUEL [Concomitant]
  28. TAMSULOSIN [Concomitant]
  29. ETOPOSIDE [Suspect]
     Indication: NON-SMALL CELL LUNG CANCER
     Dosage: DAY 1-5.DISCONTINUED ON 08FEB11
     Route: 042
     Dates: start: 20110124, end: 20110128
  30. ALBUTEROL [Concomitant]
  31. CYMBALTA [Concomitant]
  32. DEPAKOTE [Concomitant]
  33. LUNESTA [Concomitant]
  34. SINGULAIR [Concomitant]

REACTIONS (7)
  - TINNITUS [None]
  - FEBRILE NEUTROPENIA [None]
  - PNEUMONIA [None]
  - SEPSIS [None]
  - PANCYTOPENIA [None]
  - RENAL FAILURE ACUTE [None]
  - TACHYCARDIA [None]
